FAERS Safety Report 21615138 (Version 1)
Quarter: 2022Q4

REPORT INFORMATION
  Report Type: Spontaneous
  Country: CA (occurrence: CA)
  Receive Date: 20221118
  Receipt Date: 20221118
  Transmission Date: 20230112
  Serious: Yes (Hospitalization, Other)
  Sender: FDA-Public Use
  Company Number: CA-PFIZER INC-202101863383

PATIENT
  Age: 24 Year
  Sex: Male
  Weight: 58.9 kg

DRUGS (2)
  1. XELJANZ [Suspect]
     Active Substance: TOFACITINIB CITRATE
     Indication: Colitis ulcerative
     Dosage: 10 MG, 2X/DAY FOR 8 WEEKS FOLLOWED BY 5 MG, 2X/DAY
     Route: 048
     Dates: start: 20211110
  2. MESALAMINE [Concomitant]
     Active Substance: MESALAMINE
     Indication: Colitis ulcerative
     Dosage: 4.8 G, DAILY (1 DF)

REACTIONS (4)
  - Accident [Recovered/Resolved]
  - Therapeutic product effect incomplete [Unknown]
  - Flatulence [Unknown]
  - Product dose omission issue [Unknown]
